FAERS Safety Report 21924263 (Version 2)
Quarter: 2023Q1

REPORT INFORMATION
  Report Type: Spontaneous
  Country: US (occurrence: US)
  Receive Date: 20230130
  Receipt Date: 20230210
  Transmission Date: 20230418
  Serious: No
  Sender: FDA-Public Use
  Company Number: US-GBT-019646

PATIENT
  Age: 35 Year
  Sex: Male

DRUGS (1)
  1. OXBRYTA [Suspect]
     Active Substance: VOXELOTOR
     Indication: Sickle cell disease
     Route: 048
     Dates: start: 20230103

REACTIONS (3)
  - Pruritus [Unknown]
  - Abdominal pain [Recovering/Resolving]
  - Diarrhoea [Recovering/Resolving]

NARRATIVE: CASE EVENT DATE: 20230101
